FAERS Safety Report 7672737-2 (Version None)
Quarter: 2011Q3

REPORT INFORMATION
  Report Type: 
  Country: None (occurrence: None)
  Receive Date: 20110809
  Receipt Date: 20110729
  Transmission Date: 20111222
  Serious: Yes (Hospitalization)
  Sender: FDA-Public Use
  Company Number: FR-GILEAD-E2B_00001182

PATIENT
  Sex: Female
  Weight: 58 kg

DRUGS (2)
  1. TADALAFIL [Suspect]
     Indication: PULMONARY ARTERIAL HYPERTENSION
     Dosage: 20MG PER DAY
     Route: 048
     Dates: start: 20110321, end: 20110325
  2. AMBRISENTAN [Suspect]
     Indication: PULMONARY ARTERIAL HYPERTENSION
     Dosage: 5MG PER DAY
     Route: 048
     Dates: start: 20110321, end: 20110325

REACTIONS (1)
  - PULMONARY OEDEMA [None]
